FAERS Safety Report 23668918 (Version 1)
Quarter: 2024Q1

REPORT INFORMATION
  Report Type: Report from Study
  Country: CA (occurrence: CA)
  Receive Date: 20240325
  Receipt Date: 20240325
  Transmission Date: 20240410
  Serious: Yes (Other)
  Sender: FDA-Public Use
  Company Number: CA-TAKEDA-2023TUS047631

PATIENT
  Age: 30 Year
  Sex: Female

DRUGS (6)
  1. VEDOLIZUMAB [Suspect]
     Active Substance: VEDOLIZUMAB
     Indication: Crohn^s disease
     Dosage: 300 MILLIGRAM
     Route: 042
     Dates: start: 20201123
  2. VEDOLIZUMAB [Suspect]
     Active Substance: VEDOLIZUMAB
     Dosage: 300 MILLIGRAM, Q4WEEKS
     Route: 042
     Dates: start: 20221024
  3. VEDOLIZUMAB [Suspect]
     Active Substance: VEDOLIZUMAB
     Dosage: 300 MILLIGRAM, Q4WEEKS
     Route: 042
  4. BUDESONIDE [Concomitant]
     Active Substance: BUDESONIDE
     Dosage: UNK
  5. CITALOPRAM [Concomitant]
     Active Substance: CITALOPRAM\CITALOPRAM HYDROBROMIDE
     Dosage: 10 MILLIGRAM
  6. ETHINYL ESTRADIOL\NORETHINDRONE ACETATE [Concomitant]
     Active Substance: ETHINYL ESTRADIOL\NORETHINDRONE ACETATE
     Dosage: UNK

REACTIONS (4)
  - Pharyngitis streptococcal [Recovered/Resolved]
  - COVID-19 [Recovered/Resolved]
  - Off label use [Unknown]
  - Ear infection [Not Recovered/Not Resolved]

NARRATIVE: CASE EVENT DATE: 20221024
